FAERS Safety Report 9837560 (Version 1)
Quarter: 2013Q4

REPORT INFORMATION
  Report Type: Spontaneous
  Country: US (occurrence: None)
  Receive Date: 20131205
  Receipt Date: 20131205
  Transmission Date: 20140711
  Serious: Yes (Disabling, Other)
  Sender: FDA-Public Use
  Company Number: 163-POMAL-13070524

PATIENT
  Age: 73 Year
  Sex: Female

DRUGS (15)
  1. POMALYST (POMALIDOMIDE) (4 MILLIGRAM, CAPSULES) [Suspect]
     Indication: PLASMA CELL MYELOMA
     Route: 048
     Dates: start: 20130603
  2. HUMALOG (INSULIN LISPRO) [Concomitant]
  3. DEXAMETHASONE (DEXAMETHASONE) [Concomitant]
  4. FUROSEMIDE (FUROSEMIDE) [Concomitant]
  5. SYNTHROID (LEVOTHYROXINE SODIUM) [Concomitant]
  6. LANTUS SOLOSTAR (INSULIN GLARGINE) [Concomitant]
  7. GABAPENTIN (GABAPENTIN) [Concomitant]
  8. DOXAZOSIN MESYLATE (DOXAZOSIN MESYLATE) [Concomitant]
  9. ASPIRIN (ACETYLSALICYLIC ACID) [Concomitant]
  10. PROPRANOLOL (PROPRANOLOL) [Concomitant]
  11. TYLENOL EXTRA STRENGTH (PARACETAMOL) [Concomitant]
  12. PRED FORTE (PREDNISOLONE ACETATE) [Concomitant]
  13. MELPHALAN HCL (MELPHALAN) [Concomitant]
  14. DECADRON (DEXAMETHASONE) [Concomitant]
  15. AREDIA (PAMIDRONATE SODIUM) [Concomitant]

REACTIONS (3)
  - Tremor [None]
  - Platelet count decreased [None]
  - Rash [None]
